FAERS Safety Report 25531147 (Version 1)
Quarter: 2025Q3

REPORT INFORMATION
  Report Type: Spontaneous
  Country: US (occurrence: US)
  Receive Date: 20250708
  Receipt Date: 20250708
  Transmission Date: 20251021
  Serious: Yes (Life-Threatening)
  Sender: RIGEL PHARMACEUTICALS
  Company Number: US-RIGEL Pharmaceuticals, INC-20250600196

PATIENT
  Sex: Male

DRUGS (2)
  1. GAVRETO [Suspect]
     Active Substance: PRALSETINIB
     Indication: Head and neck cancer
     Dosage: 100 MG QD
     Route: 048
  2. RETEVMO [Concomitant]
     Active Substance: SELPERCATINIB
     Indication: Product used for unknown indication

REACTIONS (5)
  - Septic shock [Unknown]
  - Renal impairment [Unknown]
  - Off label use [Unknown]
  - Product prescribing issue [Unknown]
  - Stomatitis [Unknown]
